FAERS Safety Report 7744269-4 (Version None)
Quarter: 2011Q3

REPORT INFORMATION
  Report Type: 
  Country: None (occurrence: None)
  Receive Date: 20110912
  Receipt Date: 20110906
  Transmission Date: 20111222
  Serious: Yes (Other)
  Sender: FDA-Public Use
  Company Number: JP-PFIZER INC-2011208592

PATIENT
  Age: 76 Year
  Sex: Female

DRUGS (8)
  1. PREDNISOLONE [Concomitant]
     Dosage: UNK
  2. CALCIUM LACTATE [Concomitant]
  3. RIMATIL [Concomitant]
  4. ALENDRONATE SODIUM [Concomitant]
  5. RHEUMATREX [Concomitant]
  6. LYRICA [Suspect]
     Indication: PAIN
     Dosage: 75 MG, 2X/DAY
     Route: 048
     Dates: start: 20110824, end: 20110824
  7. MUCOSTA [Concomitant]
  8. KETOPROFEN [Concomitant]

REACTIONS (1)
  - LOSS OF CONSCIOUSNESS [None]
